FAERS Safety Report 26075400 (Version 1)
Quarter: 2025Q4

REPORT INFORMATION
  Report Type: Spontaneous
  Country: US (occurrence: US)
  Receive Date: 20251121
  Receipt Date: 20251121
  Transmission Date: 20260118
  Serious: No
  Sender: VERASTEM
  Company Number: US-VERASTEM-251029US-AFCPK-00760

PATIENT

DRUGS (9)
  1. AVMAPKI FAKZYNJA CO-PACK [Suspect]
     Active Substance: AVUTOMETINIB POTASSIUM\DEFACTINIB HYDROCHLORIDE
     Indication: Pancreatic carcinoma
     Dosage: AVMAPKI 3.2MG (4 CAPSULES) ON DAYS 1 AND 4 FOR 3 OF 4 WEEKS,  FAKZYNJA 200MG (1 TABLET) TWICE DAILY
     Route: 048
     Dates: start: 20251027
  2. ALIVE! CALCIUM + D3 GUMMIES [Concomitant]
     Indication: Product used for unknown indication
  3. BARIATRIC MULTIVITAMIN + CALCIUM CITRATE [Concomitant]
     Indication: Product used for unknown indication
  4. CALCIUM MAGNESIUM [CALCIUM;MAGNESIUM] [Concomitant]
     Indication: Product used for unknown indication
  5. GLUTATHIONE [Concomitant]
     Active Substance: GLUTATHIONE
     Indication: Product used for unknown indication
  6. IVERMECTIN [Concomitant]
     Active Substance: IVERMECTIN
     Indication: Product used for unknown indication
  7. PEPCID [Concomitant]
     Active Substance: FAMOTIDINE
     Indication: Product used for unknown indication
  8. VITAMINS [Concomitant]
     Active Substance: VITAMINS
     Indication: Product used for unknown indication
  9. ZOFRAN [Concomitant]
     Active Substance: ONDANSETRON HYDROCHLORIDE
     Indication: Product used for unknown indication

REACTIONS (2)
  - Vision blurred [Recovered/Resolved]
  - Off label use [Unknown]

NARRATIVE: CASE EVENT DATE: 20251028
